FAERS Safety Report 20323988 (Version 1)
Quarter: 2022Q1

REPORT INFORMATION
  Report Type: Spontaneous
  Country: US (occurrence: US)
  Receive Date: 20220111
  Receipt Date: 20220111
  Transmission Date: 20220423
  Serious: No
  Sender: FDA-Public Use
  Company Number: US-MYLANLABS-2021M1094355

PATIENT
  Sex: Female
  Weight: 68.04 kg

DRUGS (2)
  1. ESTRADIOL [Suspect]
     Active Substance: ESTRADIOL
     Indication: Pelvic floor repair
     Dosage: 1 GRAM, BIWEEKLY (1G OF TWICE A WEEK)
  2. PROAIR HFA [Concomitant]
     Active Substance: ALBUTEROL SULFATE
     Indication: Pollution
     Dosage: UNK

REACTIONS (2)
  - Off label use [Unknown]
  - Device issue [Unknown]
